FAERS Safety Report 25888840 (Version 2)
Quarter: 2025Q4

REPORT INFORMATION
  Report Type: Report from Study
  Country: CA (occurrence: CA)
  Receive Date: 20251007
  Receipt Date: 20251202
  Transmission Date: 20260118
  Serious: No
  Sender: BLUEPRINT MEDICINES
  Company Number: CA-Blueprint Medicines Corporation-2025-AER-02170

PATIENT
  Age: 59 Year
  Sex: Male

DRUGS (1)
  1. AVAPRITINIB [Suspect]
     Active Substance: AVAPRITINIB
     Indication: Advanced systemic mastocytosis
     Route: 048
     Dates: end: 20250909

REACTIONS (1)
  - Hypoaesthesia [Unknown]

NARRATIVE: CASE EVENT DATE: 20250101
